FAERS Safety Report 14913685 (Version 3)
Quarter: 2018Q2

REPORT INFORMATION
  Report Type: Spontaneous
  Country: CA (occurrence: CA)
  Receive Date: 20180518
  Receipt Date: 20180606
  Transmission Date: 20180711
  Serious: Yes (Other)
  Sender: FDA-Public Use
  Company Number: CA-CELLTRION INC.-2018CA017544

PATIENT

DRUGS (9)
  1. INFLECTRA [Suspect]
     Active Substance: INFLIXIMAB-DYYB
     Dosage: 430 MG, CYCLIC EVERY 4 WEEKS
     Route: 042
     Dates: start: 20180228
  2. INFLECTRA [Suspect]
     Active Substance: INFLIXIMAB-DYYB
     Dosage: 400 MG, CYCLIC (0, 2, AND 6 WEEKS THEN EVERY 8 WEEKS)
     Route: 042
     Dates: start: 20180209, end: 20180209
  3. INFLECTRA [Suspect]
     Active Substance: INFLIXIMAB-DYYB
     Dosage: 430 MG, CYCLIC EVERY 4 WEEKS
     Route: 042
     Dates: start: 20180424
  4. VANCOMYCIN [Concomitant]
     Active Substance: VANCOMYCIN
     Dosage: 4 DF, 1X/DAY
     Route: 048
     Dates: start: 201710
  5. INFLECTRA [Suspect]
     Active Substance: INFLIXIMAB-DYYB
     Dosage: 430 MG, CYCLIC EVERY 4 WEEKS
     Route: 042
     Dates: start: 20180228
  6. INFLECTRA [Suspect]
     Active Substance: INFLIXIMAB-DYYB
     Dosage: 430 MG, CYCLIC EVERY 4 WEEKS
     Route: 042
     Dates: start: 20180329
  7. AZATHIOPRINE. [Concomitant]
     Active Substance: AZATHIOPRINE
     Dosage: UNK
  8. INFLECTRA [Suspect]
     Active Substance: INFLIXIMAB-DYYB
     Indication: COLITIS ULCERATIVE
     Dosage: 400 MG, CYCLIC (0, 2, AND 6 WEEKS THEN EVERY 8 WEEKS)
     Route: 042
     Dates: start: 20171219, end: 20180209
  9. INFLECTRA [Suspect]
     Active Substance: INFLIXIMAB-DYYB
     Dosage: 430 MG, CYCLIC EVERY 4 WEEKS
     Route: 042
     Dates: start: 20180528

REACTIONS (11)
  - Haemorrhoids [Unknown]
  - Pseudopolyposis [Unknown]
  - Drug effect incomplete [Recovering/Resolving]
  - Large intestinal ulcer [Unknown]
  - Blood pressure fluctuation [Unknown]
  - Drug level above therapeutic [Unknown]
  - Body temperature fluctuation [Recovered/Resolved]
  - Disease recurrence [Unknown]
  - Hypotension [Unknown]
  - Clostridium difficile infection [Unknown]
  - Product use issue [Unknown]

NARRATIVE: CASE EVENT DATE: 20180228
